FAERS Safety Report 7875812-2 (Version None)
Quarter: 2011Q4

REPORT INFORMATION
  Report Type: 
  Country: None (occurrence: None)
  Receive Date: 20111031
  Receipt Date: 20111018
  Transmission Date: 20120403
  Serious: Yes (Other)
  Sender: FDA-Public Use
  Company Number: PHHY2010JP18438

PATIENT
  Sex: Female

DRUGS (4)
  1. TASIGNA [Suspect]
     Indication: CHRONIC MYELOID LEUKAEMIA TRANSFORMATION
     Dosage: 800 MG, DAILY
     Route: 048
     Dates: start: 20100204, end: 20100209
  2. PREDNISOLONE [Concomitant]
     Indication: CHRONIC MYELOID LEUKAEMIA TRANSFORMATION
     Dosage: 100 MG, DAILY
     Route: 048
     Dates: start: 20100204, end: 20100208
  3. ONCOVIN [Concomitant]
     Indication: CHRONIC MYELOID LEUKAEMIA
     Dosage: 2 MG, DAILY
     Dates: start: 20100204, end: 20100204
  4. BACTRIM [Concomitant]
     Indication: PROPHYLAXIS
     Dosage: 1 G, DAILY
     Route: 048
     Dates: start: 20100128

REACTIONS (5)
  - NEOPLASM MALIGNANT [None]
  - WHITE BLOOD CELL COUNT DECREASED [None]
  - ELECTROCARDIOGRAM QT PROLONGED [None]
  - PLATELET COUNT DECREASED [None]
  - HAEMOGLOBIN DECREASED [None]
